FAERS Safety Report 21752903 (Version 1)
Quarter: 2022Q4

REPORT INFORMATION
  Report Type: Spontaneous
  Country: US (occurrence: None)
  Receive Date: 20221219
  Receipt Date: 20221219
  Transmission Date: 20230113
  Serious: No
  Sender: FDA-Public Use
  Company Number: None

PATIENT
  Age: 20 Year
  Sex: Female

DRUGS (1)
  1. SOMATULINE DEPOT [Suspect]
     Active Substance: LANREOTIDE ACETATE
     Dosage: FREQUENCY : MONTHLY;?
     Route: 058
     Dates: start: 202210

REACTIONS (2)
  - Syringe issue [None]
  - Drug dose omission by device [None]

NARRATIVE: CASE EVENT DATE: 20221207
